FAERS Safety Report 5374816-1 (Version None)
Quarter: 2007Q2

REPORT INFORMATION
  Report Type: 
  Country: None (occurrence: None)
  Receive Date: 20070629
  Receipt Date: 20070627
  Transmission Date: 20071010
  Serious: Yes (Hospitalization)
  Sender: FDA-Public Use
  Company Number: A0660347A

PATIENT
  Age: 35 Year
  Sex: Female

DRUGS (14)
  1. AVANDIA [Suspect]
     Dosage: 4MG PER DAY
     Route: 048
     Dates: start: 20040404
  2. GLUCOPHAGE [Concomitant]
  3. TRILEPTAL [Concomitant]
  4. UNKNOWN [Concomitant]
  5. PROGESTERONE [Concomitant]
  6. PEXEVA [Concomitant]
  7. FLEXERIL [Concomitant]
  8. ASPIRIN [Concomitant]
  9. IBUPROFEN [Concomitant]
  10. ADVAIR DISKUS 100/50 [Concomitant]
  11. SINGULAIR [Concomitant]
  12. LAMICTAL [Concomitant]
  13. NITROGLYCERIN [Concomitant]
  14. TENORETIC 100 [Concomitant]

REACTIONS (4)
  - CHEST PAIN [None]
  - DYSPNOEA [None]
  - FLUID RETENTION [None]
  - WEIGHT INCREASED [None]
